FAERS Safety Report 13439527 (Version 1)
Quarter: 2017Q2

REPORT INFORMATION
  Report Type: Spontaneous
  Country: US (occurrence: US)
  Receive Date: 20170412
  Receipt Date: 20170412
  Transmission Date: 20170830
  Serious: Yes (Life-Threatening, Hospitalization, Other)
  Sender: FDA-Public Use
  Company Number: US-MYLANLABS-2017M1022843

PATIENT

DRUGS (4)
  1. KETAMINE [Suspect]
     Active Substance: KETAMINE
     Indication: TENOSYNOVITIS
     Dosage: 0.15 MG/KG/H; INITIAL DOSE 30MG
     Route: 050
  2. KETAMINE [Suspect]
     Active Substance: KETAMINE
     Dosage: 1MG/KG AT 100KG WAS DRAWN, BUT ONLY 50MG WAS USED
     Route: 050
  3. CEFAZOLIN [Concomitant]
     Active Substance: CEFAZOLIN
     Indication: ARTHRITIS BACTERIAL
     Dosage: 1G
     Route: 065
  4. DOXYCYCLINE. [Concomitant]
     Active Substance: DOXYCYCLINE
     Indication: ARTHRITIS BACTERIAL
     Dosage: 100MG
     Route: 065

REACTIONS (4)
  - Respiratory failure [Recovered/Resolved]
  - Hypertension [Recovered/Resolved]
  - Cardiac arrest [Recovered/Resolved]
  - Acute pulmonary oedema [Recovered/Resolved]
